FAERS Safety Report 5621986-3 (Version None)
Quarter: 2008Q1

REPORT INFORMATION
  Report Type: 
  Country: None (occurrence: None)
  Receive Date: 20080211
  Receipt Date: 20080208
  Transmission Date: 20080703
  Serious: Yes (Other)
  Sender: FDA-Public Use
  Company Number: D0055626A

PATIENT
  Age: 26 Year
  Sex: Male
  Weight: 66 kg

DRUGS (1)
  1. MALARONE [Suspect]
     Indication: MALARIA PROPHYLAXIS
     Dosage: 1TAB PER DAY
     Route: 048
     Dates: start: 20071220, end: 20071227

REACTIONS (9)
  - ANGIOEDEMA [None]
  - ANXIETY [None]
  - DYSPNOEA [None]
  - FEELING HOT [None]
  - MALAISE [None]
  - PYREXIA [None]
  - SWELLING [None]
  - TACHYCARDIA [None]
  - URTICARIA [None]
